FAERS Safety Report 20457183 (Version 1)
Quarter: 2022Q1

REPORT INFORMATION
  Report Type: Spontaneous
  Country: US (occurrence: US)
  Receive Date: 20220210
  Receipt Date: 20220210
  Transmission Date: 20220423
  Serious: No
  Sender: FDA-Public Use
  Company Number: US-PFIZER INC-202200012836

PATIENT
  Age: 76 Year
  Sex: Male
  Weight: 95.25 kg

DRUGS (1)
  1. VFEND [Suspect]
     Active Substance: VORICONAZOLE
     Dosage: 200 MG
     Dates: start: 20200921, end: 202106

REACTIONS (1)
  - Tooth loss [Unknown]
